FAERS Safety Report 22230705 (Version 1)
Quarter: 2023Q2

REPORT INFORMATION
  Report Type: Spontaneous
  Country: RU (occurrence: RU)
  Receive Date: 20230420
  Receipt Date: 20230420
  Transmission Date: 20230721
  Serious: Yes (Other)
  Sender: FDA-Public Use
  Company Number: RU-ABBVIE-4734802

PATIENT
  Age: 50 Year
  Sex: Female
  Weight: 109 kg

DRUGS (1)
  1. LOPINAVIR\RITONAVIR [Suspect]
     Active Substance: LOPINAVIR\RITONAVIR
     Indication: COVID-19
     Dosage: 400+100 (AS REPORTED)
     Route: 048
     Dates: start: 20200626, end: 20200626

REACTIONS (1)
  - Asphyxia [Recovered/Resolved]

NARRATIVE: CASE EVENT DATE: 20200627
